FAERS Safety Report 19067567 (Version 1)
Quarter: 2021Q1

REPORT INFORMATION
  Report Type: Spontaneous
  Country: US (occurrence: US)
  Receive Date: 20210326
  Receipt Date: 20210326
  Transmission Date: 20210420
  Serious: Yes (Hospitalization)
  Sender: FDA-Public Use
  Company Number: None

PATIENT

DRUGS (14)
  1. METHOTREXATE. [Concomitant]
     Active Substance: METHOTREXATE
  2. METHOCARBAM [Concomitant]
     Active Substance: METHOCARBAMOL
  3. FAMOTIDINE. [Concomitant]
     Active Substance: FAMOTIDINE
  4. LOMAIRA [Concomitant]
     Active Substance: PHENTERMINE HYDROCHLORIDE
  5. PAMTOPRAZOLE [Concomitant]
  6. LEVOCETIRIZ [Concomitant]
  7. ENBREL [Suspect]
     Active Substance: ETANERCEPT
     Indication: COUGH
     Route: 058
     Dates: start: 20200615
  8. CITALOPRAM [Concomitant]
     Active Substance: CITALOPRAM HYDROBROMIDE
  9. TOPIRAMATE. [Concomitant]
     Active Substance: TOPIRAMATE
  10. FLUTICASONE. [Concomitant]
     Active Substance: FLUTICASONE
  11. MONTELUKAST [Concomitant]
     Active Substance: MONTELUKAST SODIUM
  12. ESTRA/NORETH [Concomitant]
  13. OZEMPIC [Concomitant]
     Active Substance: SEMAGLUTIDE
  14. PREDNISONE. [Concomitant]
     Active Substance: PREDNISONE

REACTIONS (2)
  - Therapy interrupted [None]
  - Surgery [None]
